FAERS Safety Report 9698012 (Version 5)
Quarter: 2014Q1

REPORT INFORMATION
  Report Type: Report from Study
  Country: AT (occurrence: AT)
  Receive Date: 20131120
  Receipt Date: 20140328
  Transmission Date: 20141002
  Serious: Yes (Life-Threatening, Hospitalization, Other)
  Sender: FDA-Public Use
  Company Number: AT-CELGENEUS-009-21880-13110996

PATIENT
  Age: 70 Year
  Sex: Female
  Weight: 52 kg

DRUGS (22)
  1. REVLIMID [Suspect]
     Indication: CHRONIC MYELOMONOCYTIC LEUKAEMIA
     Dosage: 10 MILLIGRAM
     Route: 048
     Dates: start: 20131022, end: 20131119
  2. SIMVASTATIN [Concomitant]
     Indication: PRODUCT USED FOR UNKNOWN INDICATION
     Dosage: 7 MILLIGRAM
     Route: 065
     Dates: end: 20131102
  3. SIMVASTATIN [Concomitant]
     Dosage: 5 MILLIGRAM
     Route: 065
     Dates: end: 20131101
  4. OSPEXIN [Concomitant]
     Indication: HYPERSENSITIVITY VASCULITIS
     Dosage: 3000 MILLIGRAM
     Route: 065
     Dates: start: 20131029, end: 20131101
  5. PENTOLOC [Concomitant]
     Indication: PRODUCT USED FOR UNKNOWN INDICATION
     Dosage: 100 GRAM
     Route: 065
  6. PENTOLOC [Concomitant]
     Dosage: 20 MILLIGRAM
     Route: 065
     Dates: end: 20131102
  7. PENTOLOC [Concomitant]
     Dosage: 40 MILLIGRAM
     Route: 065
     Dates: start: 20131103
  8. ACTINS [Concomitant]
     Indication: PRODUCT USED FOR UNKNOWN INDICATION
     Dosage: 10 GRAM
     Route: 065
     Dates: start: 20131029, end: 20131105
  9. ZOLDEM [Concomitant]
     Indication: PRODUCT USED FOR UNKNOWN INDICATION
     Route: 065
  10. ULSAL [Concomitant]
     Indication: PRODUCT USED FOR UNKNOWN INDICATION
     Dosage: 600 MILLIGRAM
     Route: 065
     Dates: start: 20131103, end: 20131107
  11. RIBON [Concomitant]
     Indication: PRODUCT USED FOR UNKNOWN INDICATION
     Route: 065
     Dates: start: 20131102
  12. RIBON [Concomitant]
     Dosage: 120 MILLIGRAM
     Route: 065
     Dates: start: 20131103, end: 20131104
  13. FAGMENTIN [Concomitant]
     Indication: PRODUCT USED FOR UNKNOWN INDICATION
     Dosage: 400 DROPS
     Route: 065
     Dates: start: 20131102, end: 20131102
  14. LOVENOX [Concomitant]
     Indication: PRODUCT USED FOR UNKNOWN INDICATION
     Dosage: 2 GRAM
     Route: 065
     Dates: start: 20131103, end: 20131109
  15. LOVENOX [Concomitant]
     Dosage: 40 MILLIGRAM
     Route: 065
  16. KONAKION [Concomitant]
     Indication: PRODUCT USED FOR UNKNOWN INDICATION
     Dosage: 2 DOSAGE FORMS
     Route: 065
     Dates: start: 20131102, end: 20131111
  17. AERIUS [Concomitant]
     Indication: HYPERSENSITIVITY VASCULITIS
     Dosage: 5 MILLIGRAM
     Route: 065
     Dates: start: 20131029, end: 20131103
  18. URBASON [Concomitant]
     Indication: AUTOIMMUNE DISORDER
     Route: 065
     Dates: start: 201311
  19. URBASON [Concomitant]
     Route: 065
     Dates: start: 20131112
  20. CALVAMOX [Concomitant]
     Indication: PRODUCT USED FOR UNKNOWN INDICATION
     Dosage: 2 GRAM
     Route: 065
  21. EUSAPRIM FORTE [Concomitant]
     Indication: PRODUCT USED FOR UNKNOWN INDICATION
     Route: 065
  22. MYCOSTATIN [Concomitant]
     Indication: PRODUCT USED FOR UNKNOWN INDICATION
     Dosage: 4 MILLIGRAM/MILLILITERS
     Route: 048

REACTIONS (6)
  - Renal impairment [Recovered/Resolved]
  - Thrombocytopenia [Recovered/Resolved]
  - Disseminated intravascular coagulation [Recovered/Resolved]
  - Hypersensitivity vasculitis [Recovered/Resolved]
  - Pneumonia [Recovered/Resolved]
  - Sepsis [Recovered/Resolved]
